FAERS Safety Report 13682905 (Version 1)
Quarter: 2017Q2

REPORT INFORMATION
  Report Type: Spontaneous
  Country: US (occurrence: US)
  Receive Date: 20170623
  Receipt Date: 20170623
  Transmission Date: 20170830
  Serious: No
  Sender: FDA-Public Use
  Company Number: US-MALLINCKRODT-T201701305

PATIENT
  Sex: Male
  Weight: 90 kg

DRUGS (2)
  1. H.P. ACTHAR [Suspect]
     Active Substance: CORTICOTROPIN
     Dosage: 40 UNITS
     Route: 065
     Dates: start: 201702
  2. H.P. ACTHAR [Suspect]
     Active Substance: CORTICOTROPIN
     Indication: POLYMYOSITIS
     Dosage: JANUARY 2017 - 80 UNITS; FEB 2017 - 40 UNITS, ONCE WEEKLY
     Route: 065
     Dates: start: 201701, end: 20170228

REACTIONS (2)
  - Insomnia [Recovering/Resolving]
  - Muscle spasms [Recovering/Resolving]
